FAERS Safety Report 4858891-6 (Version None)
Quarter: 2005Q4

REPORT INFORMATION
  Report Type: 
  Country: None (occurrence: None)
  Receive Date: 20051219
  Receipt Date: 20050823
  Transmission Date: 20060501
  Serious: No
  Sender: FDA-Public Use
  Company Number: US-GLAXOSMITHKLINE-A0571405A

PATIENT
  Age: 66 Year
  Sex: Female

DRUGS (5)
  1. EQUATE NTS 21MG [Suspect]
     Dates: start: 20050822, end: 20050822
  2. LISINOPRIL [Concomitant]
  3. LEVOTHYROXINE SODIUM [Concomitant]
     Indication: THYROID DISORDER
  4. WARFARIN [Concomitant]
     Indication: ANTICOAGULANT THERAPY
  5. LOVASTATIN [Concomitant]
     Indication: BLOOD CHOLESTEROL INCREASED

REACTIONS (6)
  - APPLICATION SITE PRURITUS [None]
  - FEAR [None]
  - INSOMNIA [None]
  - NICOTINE DEPENDENCE [None]
  - THINKING ABNORMAL [None]
  - TREMOR [None]
